FAERS Safety Report 6644566-X (Version None)
Quarter: 2010Q1

REPORT INFORMATION
  Report Type: 
  Country: None (occurrence: None)
  Receive Date: 20100319
  Receipt Date: 20100319
  Transmission Date: 20100710
  Serious: Yes (Other)
  Sender: FDA-Public Use
  Company Number: None

PATIENT
  Age: 19 Month
  Sex: Female
  Weight: 10.8863 kg

DRUGS (1)
  1. J+J BABY BEDTIME BATH [Suspect]
     Dosage: TOPICAL
     Dates: start: 20100307, end: 20100307

REACTIONS (3)
  - DYSPNOEA [None]
  - GENERALISED ERYTHEMA [None]
  - SKIN DISORDER [None]
